FAERS Safety Report 6372239-X (Version None)
Quarter: 2009Q3

REPORT INFORMATION
  Report Type: 
  Country: None (occurrence: None)
  Receive Date: 20090924
  Receipt Date: 20090916
  Transmission Date: 20100115
  Serious: Yes (Hospitalization)
  Sender: FDA-Public Use
  Company Number: US-BIOGENIDEC-2007BI021602

PATIENT
  Age: 56 Year
  Sex: Female

DRUGS (2)
  1. AVONEX [Suspect]
     Indication: MULTIPLE SCLEROSIS
     Route: 030
     Dates: start: 20050502
  2. AVONEX [Suspect]
     Route: 030
     Dates: start: 20050103, end: 20050502

REACTIONS (2)
  - PARTIAL SEIZURES [None]
  - STATUS EPILEPTICUS [None]
